FAERS Safety Report 17796485 (Version 1)
Quarter: 2020Q2

REPORT INFORMATION
  Report Type: Report from Study
  Country: BR (occurrence: BR)
  Receive Date: 20200518
  Receipt Date: 20200518
  Transmission Date: 20200714
  Serious: Yes (Hospitalization, Other)
  Sender: FDA-Public Use
  Company Number: BR-UCBSA-2020019953

PATIENT
  Sex: Female
  Weight: 80 kg

DRUGS (2)
  1. ROTIGOTINE [Suspect]
     Active Substance: ROTIGOTINE
     Indication: PARKINSON^S DISEASE
     Dosage: 4 MG
     Route: 062
  2. PROLOPA [Concomitant]
     Active Substance: BENSERAZIDE\LEVODOPA
     Indication: PARKINSON^S DISEASE
     Route: 062

REACTIONS (7)
  - Fall [Unknown]
  - Malaise [Unknown]
  - Blood pressure decreased [Unknown]
  - Wrist fracture [Unknown]
  - Syncope [Unknown]
  - Pallor [Unknown]
  - Tremor [Unknown]
